FAERS Safety Report 14911907 (Version 7)
Quarter: 2018Q4

REPORT INFORMATION
  Report Type: Report from Study
  Country: BE (occurrence: BE)
  Receive Date: 20180518
  Receipt Date: 20181024
  Transmission Date: 20190204
  Serious: Yes (Death, Hospitalization)
  Sender: FDA-Public Use
  Company Number: BE-ROCHE-2125141

PATIENT
  Age: 65 Year
  Sex: Male
  Weight: 112 kg

DRUGS (20)
  1. DUOVENT [Concomitant]
     Active Substance: FENOTEROL HYDROBROMIDE
     Indication: ASTHMA
     Dosage: 3 PUFF
     Route: 065
     Dates: start: 20171111, end: 20171122
  2. GLUCOPHAGE [Concomitant]
     Active Substance: METFORMIN HYDROCHLORIDE
     Route: 065
     Dates: start: 2007
  3. JARDIANCE [Concomitant]
     Active Substance: EMPAGLIFLOZIN
     Route: 065
     Dates: start: 20170620
  4. MOXON [Concomitant]
     Route: 065
     Dates: start: 2002
  5. DUOVENT [Concomitant]
     Active Substance: FENOTEROL HYDROBROMIDE
     Route: 065
     Dates: start: 20180330, end: 20180404
  6. MOTILIUM [Concomitant]
     Active Substance: DOMPERIDONE
     Indication: NAUSEA
     Route: 065
     Dates: start: 20171016, end: 20171127
  7. PULMICORT TURBUHALER [Concomitant]
     Active Substance: BUDESONIDE
     Indication: ASTHMA
     Dosage: 2 PUFF
     Route: 065
     Dates: start: 20171111, end: 20171122
  8. AUGMENTIN [Concomitant]
     Active Substance: AMOXICILLIN\CLAVULANATE POTASSIUM
     Indication: ASTHMA
     Route: 065
     Dates: start: 20171113, end: 20171122
  9. INUVAIR [Concomitant]
     Active Substance: BECLOMETHASONE DIPROPIONATE\FORMOTEROL FUMARATE
     Dosage: 1 PUFF
     Route: 065
     Dates: start: 2016
  10. RELVAR [Concomitant]
     Active Substance: FLUTICASONE FUROATE\VILANTEROL TRIFENATATE
     Dosage: 1 PUFF
     Route: 065
     Dates: start: 2016
  11. TETRALYSAL (BELGIUM) [Concomitant]
     Indication: RASH
     Route: 065
     Dates: start: 20171031
  12. COBIMETINIB. [Suspect]
     Active Substance: COBIMETINIB
     Indication: COLORECTAL CANCER METASTATIC
     Dosage: DATE OF MOST RECENT DOSE OF COBIMETINIB PRIOR TO THE ADVERSE EVENT: 03/DEC/2017.?FOR 3 WEEKS FOLLOWE
     Route: 048
     Dates: start: 20171016
  13. DUOVENT [Concomitant]
     Active Substance: FENOTEROL HYDROBROMIDE
     Dosage: 1 PUFF
     Route: 065
     Dates: start: 1977, end: 20180326
  14. LOORTAN [Concomitant]
     Route: 065
     Dates: start: 2002
  15. XOLAIR [Concomitant]
     Active Substance: OMALIZUMAB
     Route: 065
     Dates: start: 2013, end: 20180316
  16. MODURETIC 5-50 [Concomitant]
     Active Substance: AMILORIDE HYDROCHLORIDE\HYDROCHLOROTHIAZIDE
     Route: 065
     Dates: start: 2002
  17. NEXIAM [Concomitant]
     Active Substance: ESOMEPRAZOLE
     Route: 065
     Dates: start: 20170607
  18. ATEZOLIZUMAB. [Suspect]
     Active Substance: ATEZOLIZUMAB
     Indication: COLORECTAL CANCER METASTATIC
     Dosage: DATE OF MOST RECENT DOSE OF ATEZOLIZUMAB PRIOR TO THE ADVERSE EVENT: 27/NOV/2017 AT 13:15.?ON DAY 1
     Route: 042
     Dates: start: 20171016
  19. ROZEX (METRONIDAZOLE) [Concomitant]
     Active Substance: METRONIDAZOLE
     Indication: RASH
     Route: 065
     Dates: start: 20171031
  20. DAFLON [Concomitant]
     Indication: HAEMORRHOIDS
     Route: 065
     Dates: start: 20171130, end: 20171201

REACTIONS (2)
  - Organising pneumonia [Fatal]
  - Lung disorder [Not Recovered/Not Resolved]

NARRATIVE: CASE EVENT DATE: 20171206
